FAERS Safety Report 16451021 (Version 1)
Quarter: 2019Q2

REPORT INFORMATION
  Report Type: Spontaneous
  Country: US (occurrence: US)
  Receive Date: 20190619
  Receipt Date: 20190619
  Transmission Date: 20190711
  Serious: No
  Sender: FDA-Public Use
  Company Number: US-PFIZER INC-2019208872

PATIENT
  Age: 60 Year
  Sex: Male

DRUGS (2)
  1. XELJANZ XR [Suspect]
     Active Substance: TOFACITINIB CITRATE
     Indication: RHEUMATOID ARTHRITIS
     Dosage: 11 MG, DAILY [TAKE 1 TABLET EVERY DAY BY ORAL ROUTE AS DIRECTED FOR 30 DAYS]
     Route: 048
     Dates: start: 20190604
  2. XELJANZ [Suspect]
     Active Substance: TOFACITINIB CITRATE
     Indication: RHEUMATOID ARTHRITIS
     Dosage: 5 MG, DAILY [TAKE 1 TABLET EVERY DAY BY ORAL ROUTE AS DIRECTED]
     Route: 048
     Dates: start: 20190604

REACTIONS (5)
  - Product use issue [Unknown]
  - Arthralgia [Unknown]
  - Off label use [Unknown]
  - Skin papilloma [Unknown]
  - Gait disturbance [Unknown]
